FAERS Safety Report 10813640 (Version 1)
Quarter: 2015Q1

REPORT INFORMATION
  Report Type: Spontaneous
  Country: US (occurrence: US)
  Receive Date: 20150218
  Receipt Date: 20150218
  Transmission Date: 20150721
  Serious: Yes (Other)
  Sender: FDA-Public Use
  Company Number: US-ELI_LILLY_AND_COMPANY-US201502005035

PATIENT
  Sex: Female

DRUGS (2)
  1. HUMALOG [Suspect]
     Active Substance: INSULIN LISPRO
     Dosage: 5 U, BID
     Route: 065
     Dates: start: 201401
  2. HUMALOG [Suspect]
     Active Substance: INSULIN LISPRO
     Indication: DIABETES MELLITUS
     Dosage: 10 U, EACH MORNING
     Route: 065
     Dates: start: 201401

REACTIONS (10)
  - Hypoglycaemic unconsciousness [Unknown]
  - Incorrect dose administered [Unknown]
  - Scoliosis [Unknown]
  - Pelvic fracture [Unknown]
  - Fall [Unknown]
  - Nerve compression [Unknown]
  - Underdose [Unknown]
  - Hypoaesthesia [Unknown]
  - Spinal fracture [Unknown]
  - Medication error [Unknown]
